FAERS Safety Report 15320792 (Version 1)
Quarter: 2018Q3

REPORT INFORMATION
  Report Type: Report from Study
  Country: FR (occurrence: FR)
  Receive Date: 20180827
  Receipt Date: 20180827
  Transmission Date: 20181010
  Serious: Yes (Death)
  Sender: FDA-Public Use
  Company Number: FR-ROCHE-2174461

PATIENT
  Age: 74 Year
  Sex: Male
  Weight: 52.3 kg

DRUGS (10)
  1. ZELITREX [Concomitant]
     Active Substance: VALACYCLOVIR HYDROCHLORIDE
     Indication: HERPES ZOSTER
     Route: 065
     Dates: start: 20160425
  2. CYCLOPHOSPHAMIDE. [Suspect]
     Active Substance: CYCLOPHOSPHAMIDE
     Indication: B-CELL LYMPHOMA
     Dosage: DATE OF MOST RECENT DOSE 1140 MG PRIOR TO THE EVENT ONSET: 12/AUG/2016 AT 14.00?ROUTE AND DOSE PER P
     Route: 042
     Dates: start: 20160425
  3. DOXORUBICIN [Suspect]
     Active Substance: DOXORUBICIN
     Indication: B-CELL LYMPHOMA
     Dosage: DATE OF MOST RECENT DOSE 80 MG PRIOR TO THE EVENT ONSET: 12/AUG/2017 AT 14.40?ROUTE AND DOSE PER PRO
     Route: 042
     Dates: start: 20160425
  4. PREDNISONE. [Suspect]
     Active Substance: PREDNISONE
     Indication: B-CELL LYMPHOMA
     Dosage: DATE OF MOST RECENT DOSE 100 MG PRIOR TO THE EVENT ONSET: 16/AUG/2016?ROUTE AND DOSE PER PROTOCOL
     Route: 048
     Dates: start: 20160425
  5. VENETOCLAX. [Suspect]
     Active Substance: VENETOCLAX
     Indication: B-CELL LYMPHOMA
     Dosage: DATE OF MOST RECENT DOSE 800 MG PRIOR TO THE EVENT ONSET: 27/SEP/2016?(200 TO 800 MG AS PER PROTOCOL
     Route: 048
     Dates: start: 20160428
  6. VINCRISTINE [Suspect]
     Active Substance: VINCRISTINE
     Indication: B-CELL LYMPHOMA
     Dosage: DATE OF MOST RECENT DOSE 2 MG PRIOR TO THE EVENT ONSET: 12/AUG/2016 AT 15.30?ROUTE AND DOSE PER PROT
     Route: 042
     Dates: start: 20160425
  7. BETAHISTINE [Concomitant]
     Active Substance: BETAHISTINE
     Indication: MENIERE^S DISEASE
     Route: 065
     Dates: start: 1983
  8. BACTRIM [Concomitant]
     Active Substance: SULFAMETHOXAZOLE\TRIMETHOPRIM
     Indication: PNEUMOCYSTIS JIROVECII PNEUMONIA
     Route: 065
     Dates: start: 20160425
  9. RITUXIMAB. [Suspect]
     Active Substance: RITUXIMAB
     Indication: B-CELL LYMPHOMA
     Dosage: DATE OF MOST RECENT DOSE 570 MG PRIOR TO THE EVENT ONSET: 23/SEP/2017 AT 14.20?ROUTE AND DOSE PER PR
     Route: 042
     Dates: start: 20160425
  10. FLUOXETINE [Concomitant]
     Active Substance: FLUOXETINE HYDROCHLORIDE
     Indication: ANXIETY
     Route: 065
     Dates: start: 20161024

REACTIONS (1)
  - Acute myeloid leukaemia [Fatal]

NARRATIVE: CASE EVENT DATE: 20180124
